FAERS Safety Report 5689315-7 (Version None)
Quarter: 2008Q1

REPORT INFORMATION
  Report Type: 
  Country: None (occurrence: None)
  Receive Date: 20080331
  Receipt Date: 20080324
  Transmission Date: 20080703
  Serious: Yes (Hospitalization)
  Sender: FDA-Public Use
  Company Number: US-ELI_LILLY_AND_COMPANY-US200803005328

PATIENT
  Sex: Female

DRUGS (2)
  1. FORTEO [Suspect]
     Dosage: UNK, DAILY (1/D)
     Dates: start: 20070801
  2. FORTEO [Suspect]
     Dosage: UNK, DAILY (1/D)
     Dates: start: 20080319

REACTIONS (1)
  - DIVERTICULITIS [None]
